FAERS Safety Report 22029970 (Version 1)
Quarter: 2023Q1

REPORT INFORMATION
  Report Type: Spontaneous
  Country: US (occurrence: US)
  Receive Date: 20230223
  Receipt Date: 20230223
  Transmission Date: 20230418
  Serious: Yes (Other)
  Sender: FDA-Public Use
  Company Number: US-LANTHEUS-LMI-2022-01253

PATIENT
  Age: 84 Year
  Sex: Male
  Weight: 84 kg

DRUGS (1)
  1. DEFINITY [Suspect]
     Active Substance: PERFLUTREN
     Indication: Echocardiogram
     Dosage: 2 MILLILITRE (1.3 ML DEFINITY PREPARED IN 8.7ML DILUENT)
     Route: 042
     Dates: start: 20221013, end: 20221013

REACTIONS (2)
  - Seizure [Recovered/Resolved]
  - Heart rate increased [Recovered/Resolved]

NARRATIVE: CASE EVENT DATE: 20221013
